FAERS Safety Report 10479136 (Version 2)
Quarter: 2014Q4

REPORT INFORMATION
  Report Type: Spontaneous
  Country: US (occurrence: US)
  Receive Date: 20140926
  Receipt Date: 20141104
  Transmission Date: 20150528
  Serious: Yes (Other)
  Sender: FDA-Public Use
  Company Number: US-PFIZER INC-2014265404

PATIENT
  Age: 85 Year
  Sex: Female

DRUGS (1)
  1. LIPITOR [Suspect]
     Active Substance: ATORVASTATIN CALCIUM
     Indication: ANTICOAGULANT THERAPY
     Dosage: UNK

REACTIONS (4)
  - Pain [Unknown]
  - Paraesthesia [Unknown]
  - Diabetes mellitus [Unknown]
  - Dizziness [Unknown]
